FAERS Safety Report 25392900 (Version 1)
Quarter: 2025Q2

REPORT INFORMATION
  Report Type: Spontaneous
  Country: US (occurrence: US)
  Receive Date: 20250604
  Receipt Date: 20250604
  Transmission Date: 20250717
  Serious: Yes (Hospitalization, Other)
  Sender: NOVITIUM PHARMA
  Company Number: US-NOVITIUMPHARMA-2025USNVP01262

PATIENT
  Age: 23 Year
  Sex: Male

DRUGS (12)
  1. FLUPHENAZINE [Suspect]
     Active Substance: FLUPHENAZINE
     Indication: Catatonia
     Route: 030
  2. FLUPHENAZINE [Suspect]
     Active Substance: FLUPHENAZINE
     Indication: Psychotic disorder
  3. FLUPHENAZINE [Suspect]
     Active Substance: FLUPHENAZINE
     Indication: Agitation
  4. CARBAMAZEPINE [Concomitant]
     Active Substance: CARBAMAZEPINE
     Indication: Psychotic disorder
  5. CARBAMAZEPINE [Concomitant]
     Active Substance: CARBAMAZEPINE
     Indication: Agitation
  6. CARBAMAZEPINE [Concomitant]
     Active Substance: CARBAMAZEPINE
     Indication: Catatonia
  7. GUANFACINE [Concomitant]
     Active Substance: GUANFACINE
     Indication: Psychotic disorder
  8. GUANFACINE [Concomitant]
     Active Substance: GUANFACINE
     Indication: Agitation
  9. GUANFACINE [Concomitant]
     Active Substance: GUANFACINE
     Indication: Catatonia
  10. BENZTROPINE [Concomitant]
     Active Substance: BENZTROPINE
     Indication: Psychotic disorder
  11. BENZTROPINE [Concomitant]
     Active Substance: BENZTROPINE
     Indication: Agitation
  12. BENZTROPINE [Concomitant]
     Active Substance: BENZTROPINE
     Indication: Catatonia

REACTIONS (2)
  - Drug intolerance [Unknown]
  - Neuroleptic malignant syndrome [Recovering/Resolving]
